FAERS Safety Report 18558503 (Version 1)
Quarter: 2020Q4

REPORT INFORMATION
  Report Type: Spontaneous
  Country: NL (occurrence: NL)
  Receive Date: 20201130
  Receipt Date: 20201130
  Transmission Date: 20210114
  Serious: Yes (Other)
  Sender: FDA-Public Use
  Company Number: NL-TEVA-2020-NL-1853184

PATIENT
  Age: 72 Year
  Sex: Female
  Weight: 50 kg

DRUGS (3)
  1. CANDESARTAN TABLET  4MG / BRAND NAME NOT SPECIFIED [Concomitant]
     Dosage: 4 MG (MILLIGRAM),THERAPY START DATE: ASKU,THERAPY END DATE:ASKU
  2. APIXABAN TABLET 5MG / ELIQUIS TABLET FILMOMHULD 5MG [Concomitant]
     Dosage: 10 MILLIGRAM DAILY; THERAPY START DATE:ASKU,THERAPY END DATE:ASKU
  3. METOPROLOL TABLET MGA 200MG (TARTRAAT) / BRAND NAME NOT SPECIFIED [Suspect]
     Active Substance: METOPROLOL
     Indication: HYPERTENSION
     Dosage: 200 MG (MILLIGRAM),THERAPY END DATE:ASKU
     Dates: start: 2018

REACTIONS (1)
  - Arrhythmia [Not Recovered/Not Resolved]

NARRATIVE: CASE EVENT DATE: 20201007
